FAERS Safety Report 4475429-6 (Version None)
Quarter: 2004Q4

REPORT INFORMATION
  Report Type: 
  Country: None (occurrence: None)
  Receive Date: 20041014
  Receipt Date: 20041014
  Transmission Date: 20050328
  Serious: Yes (Hospitalization)
  Sender: FDA-Public Use
  Company Number: None

PATIENT
  Age: 45 Year
  Sex: Male
  Weight: 79.3795 kg

DRUGS (3)
  1. CISPLATIN [Suspect]
     Indication: SQUAMOUS CELL CARCINOMA
     Dosage: 100 MG/M2 (200MG IV)
     Route: 042
     Dates: start: 20040824
  2. CISPLATIN [Suspect]
     Indication: SQUAMOUS CELL CARCINOMA
     Dosage: 100 MG/M2 (200MG IV)
     Route: 042
     Dates: start: 20040914
  3. EXTERNAL BEAM RT PER RTOG PROTOCOL [Concomitant]

REACTIONS (7)
  - CHILLS [None]
  - INFLAMMATION [None]
  - MARKEDLY REDUCED DIETARY INTAKE [None]
  - MUCOSAL INFLAMMATION [None]
  - ODYNOPHAGIA [None]
  - PYREXIA [None]
  - TREMOR [None]
